FAERS Safety Report 24661969 (Version 1)
Quarter: 2024Q4

REPORT INFORMATION
  Report Type: Spontaneous
  Country: ET (occurrence: ET)
  Receive Date: 20241125
  Receipt Date: 20241125
  Transmission Date: 20250114
  Serious: Yes (Life-Threatening)
  Sender: GE HEALTHCARE
  Company Number: ET-GE HEALTHCARE-2024CSU013302

PATIENT
  Age: 59 Year
  Sex: Male

DRUGS (2)
  1. OMNIPAQUE [Suspect]
     Active Substance: IOHEXOL
     Indication: Computerised tomogram thorax
     Dosage: 60 ML, TOTAL
     Route: 065
     Dates: start: 20241114, end: 20241114
  2. OMNIPAQUE [Suspect]
     Active Substance: IOHEXOL
     Indication: Computerised tomogram neck

REACTIONS (6)
  - Defaecation urgency [Recovered/Resolved]
  - Micturition urgency [Recovered/Resolved]
  - Restlessness [Recovered/Resolved]
  - Pulse absent [Recovered/Resolved]
  - Blood pressure immeasurable [Recovered/Resolved]
  - Hyperhidrosis [Recovered/Resolved]

NARRATIVE: CASE EVENT DATE: 20241114
